FAERS Safety Report 9599247 (Version 1)
Quarter: 2013Q4

REPORT INFORMATION
  Report Type: Spontaneous
  Country: US (occurrence: US)
  Receive Date: 20131004
  Receipt Date: 20131004
  Transmission Date: 20140711
  Serious: No
  Sender: FDA-Public Use
  Company Number: US-AMGEN-USASP2013027962

PATIENT
  Age: 39 Year
  Sex: Male
  Weight: 92.97 kg

DRUGS (4)
  1. ENBREL [Suspect]
     Indication: PSORIATIC ARTHROPATHY
     Dosage: UNK
  2. FENOFIBRATE [Concomitant]
     Dosage: UNK
  3. TRILEPTAL [Concomitant]
     Dosage: UNK
  4. ZOLOFT [Concomitant]
     Dosage: UNK

REACTIONS (2)
  - Irritability [Unknown]
  - Depression [Unknown]
